FAERS Safety Report 15545058 (Version 1)
Quarter: 2018Q4

REPORT INFORMATION
  Report Type: Spontaneous
  Country: US (occurrence: US)
  Receive Date: 20181024
  Receipt Date: 20181024
  Transmission Date: 20190205
  Serious: No
  Sender: FDA-Public Use
  Company Number: US-ASTRAZENECA-2018SF36728

PATIENT
  Age: 641 Month
  Sex: Male
  Weight: 81.6 kg

DRUGS (6)
  1. ASPIRIN. [Concomitant]
     Active Substance: ASPIRIN
     Indication: CARDIAC DISORDER
     Route: 048
     Dates: start: 201808
  2. ATORVASTATIN [Concomitant]
     Active Substance: ATORVASTATIN
     Indication: CARDIAC DISORDER
     Route: 048
     Dates: start: 201808
  3. BRILINTA [Suspect]
     Active Substance: TICAGRELOR
     Indication: STENT PLACEMENT
     Route: 048
     Dates: start: 201808
  4. METOPROLOL SUCCINATE. [Suspect]
     Active Substance: METOPROLOL SUCCINATE
     Indication: CARDIAC DISORDER
     Route: 048
     Dates: start: 201808
  5. LISINOPRIL. [Suspect]
     Active Substance: LISINOPRIL
     Indication: CARDIAC DISORDER
     Route: 048
     Dates: start: 201808
  6. PANTOPRAZOLE [Concomitant]
     Active Substance: PANTOPRAZOLE
     Indication: CARDIAC DISORDER
     Route: 048
     Dates: start: 201808

REACTIONS (4)
  - Cerebral disorder [Not Recovered/Not Resolved]
  - Pain in extremity [Not Recovered/Not Resolved]
  - Back pain [Not Recovered/Not Resolved]
  - Neck pain [Not Recovered/Not Resolved]

NARRATIVE: CASE EVENT DATE: 201809
